FAERS Safety Report 20148187 (Version 1)
Quarter: 2021Q4

REPORT INFORMATION
  Report Type: Spontaneous
  Country: PT (occurrence: PT)
  Receive Date: 20211204
  Receipt Date: 20211204
  Transmission Date: 20220303
  Serious: Yes (Other)
  Sender: FDA-Public Use
  Company Number: PT-009507513-2111PRT003622

PATIENT
  Age: 41 Year
  Sex: Male

DRUGS (4)
  1. ABACAVIR SULFATE\LAMIVUDINE [Suspect]
     Active Substance: ABACAVIR SULFATE\LAMIVUDINE
     Indication: Product used for unknown indication
     Dosage: UNK
     Route: 065
     Dates: start: 201505
  2. EFAVIRENZ [Suspect]
     Active Substance: EFAVIRENZ
     Indication: Product used for unknown indication
     Dosage: UNK
     Route: 048
     Dates: start: 201505
  3. EMTRICITABINE\TENOFOVIR [Suspect]
     Active Substance: EMTRICITABINE\TENOFOVIR
     Indication: Product used for unknown indication
     Dosage: UNK
     Route: 065
     Dates: start: 201603
  4. DOLUTEGRAVIR [Suspect]
     Active Substance: DOLUTEGRAVIR
     Indication: Product used for unknown indication
     Dosage: UNK
     Route: 065
     Dates: start: 201603

REACTIONS (10)
  - Malaise [Unknown]
  - Restlessness [Unknown]
  - HIV infection [Unknown]
  - Dizziness [Unknown]
  - Agitation [Unknown]
  - Cytomegalovirus test positive [Unknown]
  - Multiple-drug resistance [Unknown]
  - Nightmare [Recovering/Resolving]
  - Toxoplasma serology positive [Unknown]
  - Irritability [Recovering/Resolving]

NARRATIVE: CASE EVENT DATE: 20150601
